FAERS Safety Report 12997659 (Version 2)
Quarter: 2017Q2

REPORT INFORMATION
  Report Type: Spontaneous
  Country: US (occurrence: US)
  Receive Date: 20161205
  Receipt Date: 20170417
  Transmission Date: 20170830
  Serious: Yes (Hospitalization, Other)
  Sender: FDA-Public Use
  Company Number: US-JNJFOC-20161201053

PATIENT
  Sex: Female
  Weight: 90.72 kg

DRUGS (6)
  1. LEVAQUIN [Suspect]
     Active Substance: LEVOFLOXACIN
     Indication: CEREBROSPINAL FLUID LEAKAGE
     Route: 048
     Dates: start: 199702
  2. LEVAQUIN [Suspect]
     Active Substance: LEVOFLOXACIN
     Indication: PYREXIA
     Route: 042
     Dates: start: 199702
  3. LEVAQUIN [Suspect]
     Active Substance: LEVOFLOXACIN
     Indication: PYREXIA
     Route: 048
     Dates: start: 199702
  4. LEVAQUIN [Suspect]
     Active Substance: LEVOFLOXACIN
     Indication: CEREBROSPINAL FLUID LEAKAGE
     Route: 042
     Dates: start: 199702
  5. SYNTHROID [Concomitant]
     Active Substance: LEVOTHYROXINE SODIUM
     Indication: THYROID DISORDER
     Route: 048
  6. ULTRAM [Concomitant]
     Active Substance: TRAMADOL HYDROCHLORIDE
     Indication: PAIN
     Route: 065
     Dates: start: 2007

REACTIONS (10)
  - Abasia [Unknown]
  - Ligament rupture [Not Recovered/Not Resolved]
  - Intervertebral disc protrusion [Not Recovered/Not Resolved]
  - Trigger finger [Not Recovered/Not Resolved]
  - Tendon rupture [Unknown]
  - Fall [Recovered/Resolved]
  - Intervertebral disc compression [Not Recovered/Not Resolved]
  - Product use in unapproved indication [Unknown]
  - Off label use [Unknown]
  - Rotator cuff syndrome [Recovered/Resolved]

NARRATIVE: CASE EVENT DATE: 2001
